FAERS Safety Report 20170797 (Version 1)
Quarter: 2021Q4

REPORT INFORMATION
  Report Type: Spontaneous
  Country: US (occurrence: None)
  Receive Date: 20211210
  Receipt Date: 20211210
  Transmission Date: 20220303
  Serious: No
  Sender: FDA-Public Use
  Company Number: None

PATIENT
  Age: 76 Year
  Sex: Male

DRUGS (1)
  1. RIVAROXABAN [Suspect]
     Active Substance: RIVAROXABAN
     Dosage: FREQUENCY : DAILY;?
     Route: 048
     Dates: end: 20210222

REACTIONS (14)
  - Fall [None]
  - Confusional state [None]
  - Urinary incontinence [None]
  - Hypophagia [None]
  - Abdominal pain [None]
  - Diarrhoea [None]
  - General physical health deterioration [None]
  - Weight decreased [None]
  - Asthenia [None]
  - Unresponsive to stimuli [None]
  - Pericardial effusion [None]
  - Pulmonary embolism [None]
  - Mental status changes [None]
  - Thrombosis [None]

NARRATIVE: CASE EVENT DATE: 20210222
